FAERS Safety Report 16676607 (Version 1)
Quarter: 2019Q3

REPORT INFORMATION
  Report Type: Report from Study
  Country: BR (occurrence: BR)
  Receive Date: 20190807
  Receipt Date: 20190807
  Transmission Date: 20191004
  Serious: Yes (Other)
  Sender: FDA-Public Use
  Company Number: BR-AMGEN-BRASL2019124657

PATIENT
  Age: 49 Year
  Sex: Female

DRUGS (1)
  1. VECTIBIX [Suspect]
     Active Substance: PANITUMUMAB
     Indication: COLORECTAL CANCER METASTATIC
     Dosage: UNK, (EVERY 15 DAYS) (CATETER)
     Route: 065
     Dates: start: 20190717

REACTIONS (4)
  - Rash papular [Recovered/Resolved]
  - Pigmentation disorder [Recovering/Resolving]
  - Dry skin [Recovering/Resolving]
  - Adverse drug reaction [Recovering/Resolving]

NARRATIVE: CASE EVENT DATE: 201907
